FAERS Safety Report 14871253 (Version 1)
Quarter: 2018Q2

REPORT INFORMATION
  Report Type: Spontaneous
  Country: US (occurrence: US)
  Receive Date: 20180424
  Receipt Date: 20180424
  Transmission Date: 20180711
  Serious: Yes (Hospitalization)
  Sender: FDA-Public Use
  Company Number: None

PATIENT
  Age: 49 Year
  Sex: Female

DRUGS (3)
  1. ARMOUR THYROID [Concomitant]
     Active Substance: THYROID, PORCINE
  2. IMATINIB [Suspect]
     Active Substance: IMATINIB
     Indication: CHRONIC MYELOID LEUKAEMIA
     Route: 048
     Dates: start: 20170728, end: 20180407
  3. RANITIDINE. [Concomitant]
     Active Substance: RANITIDINE

REACTIONS (2)
  - Disease complication [None]
  - Drug ineffective [None]

NARRATIVE: CASE EVENT DATE: 20180407
